FAERS Safety Report 13976382 (Version 1)
Quarter: 2017Q3

REPORT INFORMATION
  Report Type: Other
  Country: SE (occurrence: SE)
  Receive Date: 20170915
  Receipt Date: 20170915
  Transmission Date: 20171128
  Serious: Yes (Other)
  Sender: FDA-Public Use
  Company Number: SE-DENTSPLY-2017SCDP000082

PATIENT
  Age: 4 Year
  Sex: Male

DRUGS (3)
  1. XYLOCAIN DENTAL ADRENALIN VIALS [Suspect]
     Active Substance: EPINEPHRINE BITARTRATE\LIDOCAINE HYDROCHLORIDE
     Indication: ANAESTHESIA
     Dosage: 20MG/ML + 12.5 MIKRO 1.8 ML
     Route: 065
     Dates: start: 20170609, end: 20170609
  2. LIDOKAIN /00033401/ [Suspect]
     Active Substance: LIDOCAINE
     Indication: DENTAL LOCAL ANAESTHESIA
     Dosage: LIDOKAINSALVA INTENSITY5%
     Route: 065
     Dates: start: 20170609, end: 20170609
  3. MIDAZOLAM [Suspect]
     Active Substance: MIDAZOLAM HYDROCHLORIDE
     Indication: SEDATIVE THERAPY
     Dosage: 3 MG/ML, 1.5 ML
     Route: 054
     Dates: start: 20170609, end: 20170609

REACTIONS (3)
  - Depressed level of consciousness [None]
  - Dyspnoea [None]
  - Muscle spasms [Recovered/Resolved]

NARRATIVE: CASE EVENT DATE: 20170609
